FAERS Safety Report 10643564 (Version 5)
Quarter: 2015Q2

REPORT INFORMATION
  Report Type: Spontaneous
  Country: US (occurrence: US)
  Receive Date: 20141210
  Receipt Date: 20150512
  Transmission Date: 20150821
  Serious: Yes (Hospitalization, Disabling)
  Sender: FDA-Public Use
  Company Number: US-009507513-1205USA01864

PATIENT
  Sex: Male
  Weight: 93 kg

DRUGS (3)
  1. PROPECIA [Suspect]
     Active Substance: FINASTERIDE
     Indication: ALOPECIA
     Dosage: 1 MG, UNK
     Route: 048
     Dates: start: 1998, end: 200008
  2. TAMSULOSIN HYDROCHLORIDE. [Suspect]
     Active Substance: TAMSULOSIN HYDROCHLORIDE
     Indication: BENIGN PROSTATIC HYPERPLASIA
     Dosage: 0.4 MG, UNK
     Dates: start: 2010
  3. TAMSULOSIN HYDROCHLORIDE. [Suspect]
     Active Substance: TAMSULOSIN HYDROCHLORIDE
     Dosage: 0.4 MG, UNK
     Dates: start: 2013

REACTIONS (27)
  - Testicular swelling [Unknown]
  - Libido disorder [Unknown]
  - Ejaculation failure [Not Recovered/Not Resolved]
  - Breast operation [Unknown]
  - Hydrocele [Unknown]
  - Sexual dysfunction [Not Recovered/Not Resolved]
  - Benign prostatic hyperplasia [Unknown]
  - Serum ferritin increased [Unknown]
  - Stress [Unknown]
  - Hair disorder [Unknown]
  - Anxiety [Not Recovered/Not Resolved]
  - Haemorrhoids [Unknown]
  - Ejaculation disorder [Not Recovered/Not Resolved]
  - Hypercholesterolaemia [Unknown]
  - Weight decreased [Unknown]
  - Anorgasmia [Unknown]
  - Orgasm abnormal [Unknown]
  - Erectile dysfunction [Not Recovered/Not Resolved]
  - Gynaecomastia [Unknown]
  - Epididymal cyst [Unknown]
  - Erectile dysfunction [Unknown]
  - Cognitive disorder [Not Recovered/Not Resolved]
  - Major depression [Not Recovered/Not Resolved]
  - Loss of libido [Not Recovered/Not Resolved]
  - Panic attack [Unknown]
  - Vasectomy [Unknown]
  - Drug ineffective [Unknown]

NARRATIVE: CASE EVENT DATE: 1998
